FAERS Safety Report 11426615 (Version 1)
Quarter: 2015Q3

REPORT INFORMATION
  Report Type: Spontaneous
  Country: US (occurrence: US)
  Receive Date: 20150821
  Receipt Date: 20150821
  Transmission Date: 20151125
  Serious: No
  Sender: FDA-Public Use
  Company Number: US-ELI_LILLY_AND_COMPANY-US201305006883

PATIENT
  Age: 82 Year
  Sex: Male
  Weight: 78.01 kg

DRUGS (1)
  1. CIALIS [Suspect]
     Active Substance: TADALAFIL
     Indication: ERECTILE DYSFUNCTION
     Dosage: 20 MG, PRN
     Dates: start: 20130330

REACTIONS (2)
  - Wrong technique in product usage process [Unknown]
  - Dizziness postural [Recovered/Resolved]

NARRATIVE: CASE EVENT DATE: 20130330
